FAERS Safety Report 8319967-4 (Version None)
Quarter: 2012Q2

REPORT INFORMATION
  Report Type: 
  Country: None (occurrence: None)
  Receive Date: 20120427
  Receipt Date: 20120418
  Transmission Date: 20120825
  Serious: Yes (Hospitalization)
  Sender: FDA-Public Use
  Company Number: JP-ROCHE-692929

PATIENT
  Sex: Female

DRUGS (34)
  1. ACTEMRA [Suspect]
     Route: 041
     Dates: start: 20100805, end: 20100805
  2. ACTEMRA [Suspect]
     Route: 041
     Dates: start: 20100930, end: 20100930
  3. RHEUMATREX [Concomitant]
     Route: 048
  4. PREDNISOLONE [Concomitant]
     Route: 048
     Dates: start: 20090725, end: 20090821
  5. CANDESARTAN CILEXETIL [Concomitant]
     Route: 048
  6. ACTEMRA [Suspect]
     Route: 041
     Dates: start: 20090821, end: 20090821
  7. ACTEMRA [Suspect]
     Route: 041
     Dates: start: 20100108, end: 20100108
  8. ACTEMRA [Suspect]
     Route: 041
     Dates: start: 20100902, end: 20100902
  9. BUCILLAMINE [Suspect]
     Indication: RHEUMATOID ARTHRITIS
     Route: 048
  10. DEXAMETHASONE SODIUM PHOSPHATE [Concomitant]
     Dosage: FORM: INJECTION, DRUG: ORGADRONE
     Route: 014
  11. VITAMIN B12 [Concomitant]
     Dosage: FORM: PERORAL AGENT.
     Route: 048
  12. ACTEMRA [Suspect]
     Route: 041
     Dates: start: 20090626, end: 20090626
  13. ACTEMRA [Suspect]
     Route: 041
     Dates: start: 20091215, end: 20091215
  14. FERROUS CITRATE [Concomitant]
     Dosage: FORM: PERORAL AGENT.
     Route: 048
  15. FERROUS CITRATE [Concomitant]
     Route: 048
  16. ACTEMRA [Suspect]
     Route: 041
     Dates: start: 20091016, end: 20091016
  17. METHOTREXATE [Suspect]
     Indication: RHEUMATOID ARTHRITIS
     Route: 048
     Dates: start: 20100407, end: 20110406
  18. RHEUMATREX [Concomitant]
     Route: 048
     Dates: start: 20090725, end: 20100406
  19. FOLIAMIN [Concomitant]
     Route: 048
  20. ACTEMRA [Suspect]
     Route: 041
     Dates: start: 20090724, end: 20090724
  21. ACTEMRA [Suspect]
     Route: 041
     Dates: start: 20090918, end: 20090918
  22. ACTEMRA [Suspect]
     Route: 041
     Dates: start: 20110407, end: 20110707
  23. MIZORIBINE [Suspect]
     Indication: RHEUMATOID ARTHRITIS
     Route: 048
  24. SODIUM AUROTHIOMALATE [Concomitant]
     Dosage: DRUG NAME: SHIOSOL, FORM:INJECTION.
     Route: 030
  25. ISONIAZID [Concomitant]
     Dosage: FORM: PERORAL AGENT.
     Route: 048
     Dates: start: 20090318, end: 20100406
  26. PREDNISOLONE [Concomitant]
     Route: 048
  27. PREDNISOLONE [Concomitant]
     Route: 048
     Dates: start: 20090822, end: 20100406
  28. LOXONIN [Concomitant]
     Dosage: FORM: PERORAL AGENT.
     Route: 048
  29. ACTEMRA [Suspect]
     Indication: RHEUMATOID ARTHRITIS
     Route: 041
     Dates: start: 20110407, end: 20110707
  30. ACTEMRA [Suspect]
     Route: 041
     Dates: start: 20090428, end: 20090428
  31. ACTEMRA [Suspect]
     Route: 041
     Dates: start: 20090529, end: 20090529
  32. SELBEX [Concomitant]
     Route: 048
  33. INFREE [Concomitant]
     Route: 048
  34. WARFARIN POTASSIUM [Suspect]
     Indication: PROPHYLAXIS
     Route: 048

REACTIONS (7)
  - DEVICE DISLOCATION [None]
  - WHITE BLOOD CELL COUNT DECREASED [None]
  - DEVICE RELATED INFECTION [None]
  - PUBIS FRACTURE [None]
  - FRACTURED ISCHIUM [None]
  - CARDIAC FAILURE CONGESTIVE [None]
  - HAEMORRHAGE SUBCUTANEOUS [None]
